FAERS Safety Report 10581735 (Version 1)
Quarter: 2014Q4

REPORT INFORMATION
  Report Type: Spontaneous
  Country: ES (occurrence: ES)
  Receive Date: 20141113
  Receipt Date: 20141113
  Transmission Date: 20150529
  Serious: Yes (Congenital Anomaly, Other)
  Sender: FDA-Public Use
  Company Number: PHHY2014ES147505

PATIENT
  Sex: Female

DRUGS (1)
  1. DEXAMETHASONE. [Suspect]
     Active Substance: DEXAMETHASONE
     Indication: PRODUCT USED FOR UNKNOWN INDICATION
     Dosage: (MATERNAL DOSE 23 UG/KG PER DAY)
     Route: 064

REACTIONS (6)
  - Hyponatraemia [Unknown]
  - Low birth weight baby [Unknown]
  - Adrenogenital syndrome [Unknown]
  - Foetal exposure during pregnancy [Unknown]
  - Enlarged clitoris [Unknown]
  - Premature baby [Unknown]
